FAERS Safety Report 10661817 (Version 1)
Quarter: 2014Q4

REPORT INFORMATION
  Report Type: Spontaneous
  Country: TR (occurrence: None)
  Receive Date: 20141216
  Receipt Date: 20141216
  Transmission Date: 20150529
  Serious: Yes (Hospitalization)
  Sender: FDA-Public Use
  Company Number: IPC201412-000664

PATIENT
  Age: 41 Year
  Sex: Male

DRUGS (2)
  1. ACETYLSALICYLIC ACID [Concomitant]
     Active Substance: ASPIRIN
     Dosage: 100 MG/DAY
  2. WARFARIN (WARFARIN) (WARFARIN) [Suspect]
     Active Substance: WARFARIN

REACTIONS (6)
  - Retroperitoneal haematoma [None]
  - International normalised ratio increased [None]
  - Muscle haemorrhage [None]
  - Prothrombin time prolonged [None]
  - Neuropathy peripheral [None]
  - Anaemia [None]
